FAERS Safety Report 25300396 (Version 1)
Quarter: 2025Q2

REPORT INFORMATION
  Report Type: Spontaneous
  Country: US (occurrence: None)
  Receive Date: 20250509
  Receipt Date: 20250509
  Transmission Date: 20250717
  Serious: Yes (Hospitalization)
  Sender: FDA-CTU
  Company Number: None

PATIENT
  Sex: Female

DRUGS (11)
  1. LENALIDOMIDE [Suspect]
     Active Substance: LENALIDOMIDE
     Indication: Follicular lymphoma stage III
     Dosage: FREQUENCY : DAILY;?
     Route: 048
     Dates: start: 20250509
  2. ACETAMIN SUP 650MG [Concomitant]
  3. ACYCLOVIR [Concomitant]
     Active Substance: ACYCLOVIR
  4. AMIODARONE [Concomitant]
     Active Substance: AMIODARONE
  5. ASPIRIN LOW TAB 81 MG EC [Concomitant]
  6. BACTRIM DS [Concomitant]
     Active Substance: SULFAMETHOXAZOLE\TRIMETHOPRIM
  7. D3 TAB 2000UNIT [Concomitant]
  8. DULCOLAX SUP 10MG [Concomitant]
  9. DULOXETINE CAP 60MG [Concomitant]
  10. IBUPROFEN CAP 200MG [Concomitant]
  11. KLOR-CON 10 TAB 10MEQ ER [Concomitant]

REACTIONS (6)
  - Left ventricular failure [None]
  - Chronic obstructive pulmonary disease [None]
  - Hip fracture [None]
  - Fall [None]
  - Haematoma [None]
  - Memory impairment [None]
